FAERS Safety Report 4479725-8 (Version None)
Quarter: 2004Q4

REPORT INFORMATION
  Report Type: 
  Country: None (occurrence: None)
  Receive Date: 20041019
  Receipt Date: 20040903
  Transmission Date: 20050328
  Serious: Yes (Death)
  Sender: FDA-Public Use
  Company Number: 2004AL000077

PATIENT

DRUGS (1)
  1. THIORIDAZINE HYDROCHLORIDE ORAL SOLUTION USP [Suspect]
     Dosage: 100 MG

REACTIONS (1)
  - SUDDEN DEATH [None]
